FAERS Safety Report 23846702 (Version 1)
Quarter: 2024Q2

REPORT INFORMATION
  Report Type: Spontaneous
  Country: AU (occurrence: AU)
  Receive Date: 20240513
  Receipt Date: 20240513
  Transmission Date: 20240716
  Serious: Yes (Hospitalization, Other)
  Sender: FDA-Public Use
  Company Number: AU-BRISTOL-MYERS SQUIBB COMPANY-2024-073048

PATIENT
  Age: 64 Year
  Sex: Male

DRUGS (1)
  1. NIVOLUMAB [Suspect]
     Active Substance: NIVOLUMAB
     Indication: Product used for unknown indication

REACTIONS (3)
  - Type 1 diabetes mellitus [Not Recovered/Not Resolved]
  - Diabetic ketoacidosis [Unknown]
  - Hyperglycaemic hyperosmolar nonketotic syndrome [Unknown]

NARRATIVE: CASE EVENT DATE: 20240110
